FAERS Safety Report 6877368-X (Version None)
Quarter: 2010Q3

REPORT INFORMATION
  Report Type: 
  Country: None (occurrence: None)
  Receive Date: 20100727
  Receipt Date: 20090923
  Transmission Date: 20110219
  Serious: No
  Sender: FDA-Public Use
  Company Number: US-ABBOTT-09P-163-0599579-00

PATIENT
  Sex: Female
  Weight: 81.72 kg

DRUGS (2)
  1. SYNTHROID [Suspect]
     Indication: HYPOTHYROIDISM
     Dosage: 1/2 OF A 0.05 MG TAB DAILY
     Route: 048
  2. VITAMIN B COMPLEX CAP [Concomitant]
     Indication: VITAMIN SUPPLEMENTATION

REACTIONS (8)
  - BLOOD GLUCOSE DECREASED [None]
  - HUNGER [None]
  - LACRIMATION INCREASED [None]
  - MORBID THOUGHTS [None]
  - NIGHTMARE [None]
  - TACHYCARDIA [None]
  - THERAPEUTIC RESPONSE UNEXPECTED [None]
  - VISION BLURRED [None]
